FAERS Safety Report 6795327-2 (Version None)
Quarter: 2010Q2

REPORT INFORMATION
  Report Type: 
  Country: None (occurrence: None)
  Receive Date: 20100624
  Receipt Date: 20100624
  Transmission Date: 20101027
  Serious: Yes (Hospitalization)
  Sender: FDA-Public Use
  Company Number: None

PATIENT
  Age: 83 Year
  Sex: Female

DRUGS (4)
  1. DILANTIN [Suspect]
     Indication: CONVULSION
     Dosage: 75 MG BID ORAL
     Route: 048
     Dates: start: 20010101
  2. PHENOBARBITAL SRT [Suspect]
     Indication: CONVULSION
     Dosage: 15MG AM/30 MG ORAL
     Route: 048
     Dates: start: 20010101
  3. PHENOBARBITAL SRT [Suspect]
     Indication: CONVULSION
     Dosage: 30 MG ORAL
     Route: 048
     Dates: start: 20010101
  4. DIVALPROEX SODIUM [Suspect]
     Indication: CONVULSION
     Dosage: 500 MG BID ORAL
     Route: 048
     Dates: start: 20010101

REACTIONS (4)
  - STATUS EPILEPTICUS [None]
  - TONGUE PARALYSIS [None]
  - UNRESPONSIVE TO STIMULI [None]
  - URINARY TRACT INFECTION [None]
